FAERS Safety Report 21156198 (Version 3)
Quarter: 2022Q3

REPORT INFORMATION
  Report Type: Spontaneous
  Country: JP (occurrence: JP)
  Receive Date: 20220801
  Receipt Date: 20220905
  Transmission Date: 20221027
  Serious: Yes (Hospitalization)
  Sender: FDA-Public Use
  Company Number: JP-ONO-2022JP020853

PATIENT
  Age: 66 Year
  Sex: Male

DRUGS (2)
  1. OPDIVO [Suspect]
     Active Substance: NIVOLUMAB
     Indication: Metastatic renal cell carcinoma
     Dosage: 240 MG, Q2W
     Route: 041
     Dates: start: 20171005, end: 20210715
  2. OPDIVO [Suspect]
     Active Substance: NIVOLUMAB
     Route: 041
     Dates: start: 20220224

REACTIONS (1)
  - Adrenocorticotropic hormone deficiency [Recovered/Resolved]

NARRATIVE: CASE EVENT DATE: 20210804
